FAERS Safety Report 23481348 (Version 1)
Quarter: 2024Q1

REPORT INFORMATION
  Report Type: Spontaneous
  Country: US (occurrence: None)
  Receive Date: 20240202
  Receipt Date: 20240202
  Transmission Date: 20240410
  Serious: No
  Sender: FDA-Public Use
  Company Number: None

PATIENT
  Sex: Male

DRUGS (1)
  1. HUMIRA [Suspect]
     Active Substance: ADALIMUMAB
     Indication: Psoriasis
     Dosage: 40MG EVERY 14 DAYS SC?
     Route: 058
     Dates: start: 202312

REACTIONS (5)
  - Musculoskeletal stiffness [None]
  - Pain [None]
  - Depression [None]
  - Drug ineffective [None]
  - Inappropriate schedule of product administration [None]
